FAERS Safety Report 7630801-8 (Version None)
Quarter: 2011Q3

REPORT INFORMATION
  Report Type: 
  Country: None (occurrence: None)
  Receive Date: 20110723
  Receipt Date: 20110715
  Transmission Date: 20111222
  Serious: Yes (Hospitalization)
  Sender: FDA-Public Use
  Company Number: US-ABBOTT-11P-163-0733907-00

PATIENT
  Sex: Female
  Weight: 81.72 kg

DRUGS (7)
  1. AMITRIPTYLINE HCL [Concomitant]
     Indication: NEURALGIA
  2. HUMIRA [Suspect]
     Dates: start: 20090101
  3. DICLOFENAC SODIUM [Concomitant]
     Indication: PRODUCT USED FOR UNKNOWN INDICATION
  4. HCTZ WITH DIAZIDE [Concomitant]
     Indication: HYPERTENSION
  5. PROZAC [Concomitant]
     Indication: DEPRESSION
  6. HUMIRA [Suspect]
     Indication: RHEUMATOID ARTHRITIS
     Dates: start: 20080717, end: 20100801
  7. ATENOLOL [Concomitant]
     Indication: HYPERTENSION

REACTIONS (3)
  - ARTHRITIS [None]
  - JOINT SWELLING [None]
  - INJECTION SITE PAIN [None]
